FAERS Safety Report 16396434 (Version 1)
Quarter: 2019Q2

REPORT INFORMATION
  Report Type: Spontaneous
  Country: DK (occurrence: DK)
  Receive Date: 20190605
  Receipt Date: 20190605
  Transmission Date: 20190711
  Serious: Yes (Hospitalization)
  Sender: FDA-Public Use
  Company Number: DK-BAXTER-2019BAX010978

PATIENT
  Age: 51 Year
  Sex: Male

DRUGS (8)
  1. METRONIDAZOL BAXTER VIAFLO [Suspect]
     Active Substance: METRONIDAZOLE
     Indication: EMPHYSEMA
     Route: 065
     Dates: start: 20160606
  2. CENTYL WITH POTASSIUM CHLORIDE [Concomitant]
     Active Substance: BENDROFLUMETHIAZIDE\POTASSIUM CHLORIDE
     Indication: HYPERTENSION
     Route: 048
  3. CORODIL [Concomitant]
     Indication: HYPERTENSION
     Route: 048
  4. METFORMIN [Concomitant]
     Active Substance: METFORMIN HYDROCHLORIDE
     Indication: TYPE 2 DIABETES MELLITUS
     Dosage: STRENGTH: 500MG
     Route: 048
     Dates: start: 20160316
  5. AMLODIPINE [Concomitant]
     Active Substance: AMLODIPINE BESYLATE
     Indication: HYPERTENSION
     Route: 048
     Dates: start: 20160317
  6. CORODIL [Concomitant]
     Route: 048
  7. BIOCLAVID [Suspect]
     Active Substance: AMOXICILLIN\CLAVULANIC ACID
     Indication: EMPHYSEMA
     Route: 065
     Dates: start: 20160606
  8. LOPID [Concomitant]
     Active Substance: GEMFIBROZIL
     Indication: HYPERCHOLESTEROLAEMIA
     Dosage: STRENGTH: 600MG
     Route: 048
     Dates: start: 20160316, end: 20161202

REACTIONS (1)
  - Hypomania [Unknown]

NARRATIVE: CASE EVENT DATE: 201606
